FAERS Safety Report 14612655 (Version 4)
Quarter: 2018Q4

REPORT INFORMATION
  Report Type: Spontaneous
  Country: JP (occurrence: JP)
  Receive Date: 20180308
  Receipt Date: 20181102
  Transmission Date: 20190204
  Serious: Yes (Hospitalization, Other)
  Sender: FDA-Public Use
  Company Number: JP-GLAXOSMITHKLINE-JP2018JPN035403

PATIENT
  Age: 76 Year
  Sex: Male
  Weight: 45 kg

DRUGS (14)
  1. PREDNISOLONE. [Concomitant]
     Active Substance: PREDNISOLONE
     Indication: PULMONARY FIBROSIS
     Dosage: 5 MG, 1D
     Dates: end: 20180227
  2. EDIROL [Concomitant]
     Active Substance: ELDECALCITOL
     Indication: OSTEOPOROSIS
     Dosage: 0.75 ?G, 1D
     Dates: start: 20180219, end: 20180227
  3. URALYT [Concomitant]
     Active Substance: POTASSIUM CITRATE\TRISODIUM CITRATE DIHYDRATE
     Dosage: UNK
  4. REBAMIPIDE [Concomitant]
     Active Substance: REBAMIPIDE
     Indication: PROPHYLAXIS AGAINST GASTROINTESTINAL ULCER
     Dosage: 300 MG, 1D
     Dates: start: 20180219, end: 20180227
  5. VALTREX [Suspect]
     Active Substance: VALACYCLOVIR HYDROCHLORIDE
     Indication: HERPES ZOSTER
     Dosage: 1000 MG, TID
     Route: 048
     Dates: start: 20180224, end: 20180227
  6. SOLANTAL TABLETS [Suspect]
     Active Substance: TIARAMIDE HYDROCHLORIDE
     Indication: SPINAL COMPRESSION FRACTURE
     Dosage: 300 MG, 1D
     Route: 048
     Dates: start: 20180219, end: 20180227
  7. URINORM (BENZBROMARONE) [Concomitant]
     Indication: HYPERURICAEMIA
     Dosage: 25 MG, 1D
     Dates: end: 20180227
  8. LENDORMIN [Concomitant]
     Active Substance: BROTIZOLAM
     Indication: INSOMNIA
     Dosage: 0.25 MG, 1D
     Dates: end: 20180227
  9. LIPOVAS (JAPAN) [Concomitant]
     Indication: DYSLIPIDAEMIA
     Dosage: 5 MG, 1D
     Dates: end: 20180227
  10. ONBREZ [Concomitant]
     Active Substance: INDACATEROL
     Indication: CHRONIC OBSTRUCTIVE PULMONARY DISEASE
     Dosage: 150 ?G, 1D
     Dates: end: 20180227
  11. ACETAMINOPHEN. [Concomitant]
     Active Substance: ACETAMINOPHEN
     Dosage: UNK
  12. URSO [Concomitant]
     Active Substance: URSODIOL
     Indication: BILE DUCT STONE
     Dosage: 300 MG, 1D
     Dates: end: 20180227
  13. AVAPRO [Concomitant]
     Active Substance: IRBESARTAN
     Indication: HYPERTENSION
     Dosage: 100 MG, 1D
     Dates: end: 20180227
  14. URINMET [Concomitant]
     Active Substance: POTASSIUM CITRATE\SODIUM CITRATE
     Indication: HYPERURICAEMIA
     Dosage: 1 G, 1D
     Dates: end: 20180227

REACTIONS (6)
  - Toxic encephalopathy [Unknown]
  - Altered state of consciousness [Recovered/Resolved]
  - Dyslalia [Unknown]
  - White matter lesion [Unknown]
  - Acute kidney injury [Recovered/Resolved]
  - Feeding disorder [Unknown]

NARRATIVE: CASE EVENT DATE: 20180227
